FAERS Safety Report 9015869 (Version 1)
Quarter: 2013Q1

REPORT INFORMATION
  Report Type: Spontaneous
  Country: GB (occurrence: None)
  Receive Date: 20130103
  Receipt Date: 20130103
  Transmission Date: 20140127
  Serious: Yes (Hospitalization, Disabling)
  Sender: FDA-Public Use
  Company Number: AUR-APL-2012-05551

PATIENT
  Age: 92 Year
  Sex: Female

DRUGS (6)
  1. ALENDRONIC ACID (ALENDRONIC ACID) [Suspect]
     Indication: PROPHYLAXIS
     Dosage: (1 IN 1 WK)
     Route: 048
     Dates: end: 20121130
  2. ANASTROZOLE (ANASTROZOLE) [Concomitant]
  3. DALTEPARIN (DALTEPARIN) [Concomitant]
  4. DOCUSATE (DOCUSATE) [Concomitant]
  5. SENNA (SENNA ALEXANDRINA) [Concomitant]
  6. CALCIUM AND VITAMIN D3 [Concomitant]

REACTIONS (2)
  - Hallucinations, mixed [None]
  - Nuclear magnetic resonance imaging brain abnormal [None]
